FAERS Safety Report 23950061 (Version 1)
Quarter: 2024Q2

REPORT INFORMATION
  Report Type: Spontaneous
  Country: CN (occurrence: None)
  Receive Date: 20240607
  Receipt Date: 20240607
  Transmission Date: 20240716
  Serious: Yes (Other)
  Sender: FDA-Public Use
  Company Number: CN-ROCHE-3572435

PATIENT
  Age: 59 Year
  Sex: Male

DRUGS (1)
  1. TECENTRIQ [Suspect]
     Active Substance: ATEZOLIZUMAB
     Indication: Small cell lung cancer
     Route: 065

REACTIONS (13)
  - Interstitial lung disease [Unknown]
  - Acute respiratory failure [Unknown]
  - Shock [Unknown]
  - Multiple organ dysfunction syndrome [Unknown]
  - Thrombocytopenia [Unknown]
  - Cardiac failure chronic [Unknown]
  - Malignant pleural effusion [Unknown]
  - Ectopic ACTH syndrome [Unknown]
  - Hypertension [Unknown]
  - Hypoproteinaemia [Unknown]
  - Anaemia [Unknown]
  - Coagulopathy [Unknown]
  - Disease progression [Unknown]
